FAERS Safety Report 9472129 (Version 1)
Quarter: 2013Q3

REPORT INFORMATION
  Report Type: Spontaneous
  Country: US (occurrence: US)
  Receive Date: 20130823
  Receipt Date: 20130823
  Transmission Date: 20140515
  Serious: Yes (Death)
  Sender: FDA-Public Use
  Company Number: US-JNJFOC-20130810681

PATIENT
  Sex: Female

DRUGS (2)
  1. TYLENOL EXTRA STRENGTH GEL CAP [Suspect]
     Route: 065
  2. TYLENOL EXTRA STRENGTH GEL CAP [Suspect]
     Indication: PRODUCT USED FOR UNKNOWN INDICATION
     Route: 065

REACTIONS (2)
  - Death [Fatal]
  - Expired drug administered [Unknown]
